FAERS Safety Report 24931743 (Version 1)
Quarter: 2025Q1

REPORT INFORMATION
  Report Type: Report from Study
  Country: US (occurrence: US)
  Receive Date: 20250205
  Receipt Date: 20250205
  Transmission Date: 20250409
  Serious: No
  Sender: EXELIXIS
  Company Number: US-EXELIXIS-CABO-24078697

PATIENT
  Sex: Male

DRUGS (2)
  1. CABOMETYX [Suspect]
     Active Substance: CABOZANTINIB S-MALATE
     Indication: Renal cell carcinoma
     Dosage: 60 MG, QD
     Route: 048
  2. IMODIUM [Suspect]
     Active Substance: LOPERAMIDE HYDROCHLORIDE
     Indication: Diarrhoea

REACTIONS (10)
  - Abdominal discomfort [Unknown]
  - Taste disorder [Unknown]
  - Hyperkeratosis [Unknown]
  - Weight decreased [Unknown]
  - Dry skin [Unknown]
  - Diarrhoea [Unknown]
  - Rhinorrhoea [Unknown]
  - Nasal ulcer [Unknown]
  - Oral disorder [Unknown]
  - Constipation [Unknown]
